FAERS Safety Report 4522322-6 (Version None)
Quarter: 2004Q4

REPORT INFORMATION
  Report Type: 
  Country: None (occurrence: None)
  Receive Date: 20041207
  Receipt Date: 20041122
  Transmission Date: 20050328
  Serious: Yes (Hospitalization)
  Sender: FDA-Public Use
  Company Number: USA041184348

PATIENT
  Age: 17 Year
  Sex: Female
  Weight: 52 kg

DRUGS (8)
  1. CYMBALTA [Suspect]
     Indication: PAIN
     Dosage: 30 MG DAY
     Dates: start: 20041101, end: 20041120
  2. PROZAC [Suspect]
     Dates: end: 20040804
  3. LEXAPRO [Concomitant]
  4. VALIUM [Concomitant]
  5. NEURONTIN (GABAPENTIN PFIZER) [Concomitant]
  6. DIAMOX (ACETAZOLAMIDE SODIUM) [Concomitant]
  7. NEXIUM [Concomitant]
  8. ^ACNE MEDICINE^ [Concomitant]

REACTIONS (10)
  - ANXIETY [None]
  - APHASIA [None]
  - HEADACHE [None]
  - INCONTINENCE [None]
  - MEDICATION ERROR [None]
  - MUSCLE RIGIDITY [None]
  - MUSCULAR WEAKNESS [None]
  - NAUSEA [None]
  - SHUNT OCCLUSION [None]
  - STOMACH DISCOMFORT [None]
